FAERS Safety Report 7444874-9 (Version None)
Quarter: 2011Q2

REPORT INFORMATION
  Report Type: 
  Country: None (occurrence: None)
  Receive Date: 20110429
  Receipt Date: 20110418
  Transmission Date: 20111010
  Serious: Yes (Hospitalization, Other)
  Sender: FDA-Public Use
  Company Number: PHHY2011NL20078

PATIENT
  Sex: Female

DRUGS (3)
  1. ZOMETA [Suspect]
     Dosage: 4 MG/5 ML PER 21 DAYS
     Dates: start: 20110331
  2. ZOMETA [Suspect]
     Dosage: 4 MG/5 ML PER 21 DAYS
     Dates: start: 20110310
  3. ZOMETA [Suspect]
     Indication: BREAST CANCER METASTATIC
     Dosage: 4 MG/5 ML PER 21 DAYS
     Dates: start: 20110217

REACTIONS (12)
  - HEPATIC FUNCTION ABNORMAL [None]
  - NAUSEA [None]
  - TUMOUR MARKER INCREASED [None]
  - VOMITING [None]
  - DEHYDRATION [None]
  - CHILLS [None]
  - BODY TEMPERATURE INCREASED [None]
  - BONE SCAN ABNORMAL [None]
  - NEOPLASM MALIGNANT [None]
  - METASTASES TO LIVER [None]
  - MYALGIA [None]
  - ARTHRALGIA [None]
